FAERS Safety Report 7332170-X (Version None)
Quarter: 2011Q1

REPORT INFORMATION
  Report Type: 
  Country: None (occurrence: None)
  Receive Date: 20110304
  Receipt Date: 20110224
  Transmission Date: 20110831
  Serious: Yes (Hospitalization)
  Sender: FDA-Public Use
  Company Number: ES-ELI_LILLY_AND_COMPANY-ES201102006975

PATIENT
  Sex: Female
  Weight: 18.5 kg

DRUGS (2)
  1. SOMATROPIN [Suspect]
     Dosage: 0.6 MG, DAILY (1/D)
     Route: 058
     Dates: start: 20051201
  2. SOMATROPIN [Suspect]
     Dosage: 0.4 MG, UNK
     Route: 058

REACTIONS (1)
  - EPIPHYSIOLYSIS [None]
